FAERS Safety Report 11449679 (Version 1)
Quarter: 2015Q3

REPORT INFORMATION
  Report Type: Spontaneous
  Country: US (occurrence: US)
  Receive Date: 20150903
  Receipt Date: 20150903
  Transmission Date: 20151125
  Serious: Yes (Other)
  Sender: FDA-Public Use
  Company Number: US-TEVA-590800USA

PATIENT
  Age: 53 Year
  Sex: Female

DRUGS (1)
  1. COPAXONE [Suspect]
     Active Substance: GLATIRAMER ACETATE
     Indication: MULTIPLE SCLEROSIS
     Route: 058
     Dates: start: 20140826

REACTIONS (4)
  - Nausea [Unknown]
  - Immediate post-injection reaction [Unknown]
  - Dyspnoea [Unknown]
  - Erythema [Unknown]

NARRATIVE: CASE EVENT DATE: 201508
